FAERS Safety Report 16771236 (Version 1)
Quarter: 2019Q3

REPORT INFORMATION
  Report Type: Spontaneous
  Country: BR (occurrence: BR)
  Receive Date: 20190904
  Receipt Date: 20190904
  Transmission Date: 20191005
  Serious: Yes (Hospitalization, Other)
  Sender: FDA-Public Use
  Company Number: BR-BRISTOL-MYERS SQUIBB COMPANY-BMS-2019-084745

PATIENT
  Age: 59 Year

DRUGS (1)
  1. IPILIMUMAB [Suspect]
     Active Substance: IPILIMUMAB
     Indication: METASTATIC MALIGNANT MELANOMA
     Dosage: 3 MILLIGRAM/KILOGRAM
     Route: 065
     Dates: start: 20160229

REACTIONS (4)
  - Budd-Chiari syndrome [Unknown]
  - Vein disorder [Unknown]
  - Abdominal distension [Unknown]
  - Confusional state [Unknown]

NARRATIVE: CASE EVENT DATE: 201604
